FAERS Safety Report 5976897-0 (Version None)
Quarter: 2008Q4

REPORT INFORMATION
  Report Type: 
  Country: None (occurrence: None)
  Receive Date: 20081125
  Receipt Date: 20081114
  Transmission Date: 20090506
  Serious: Yes (Other)
  Sender: FDA-Public Use
  Company Number: 2008SP023310

PATIENT
  Age: 42 Year
  Sex: Male

DRUGS (2)
  1. REBETOL [Suspect]
     Indication: DRUG USE FOR UNKNOWN INDICATION
     Dosage: ; PO
     Route: 048
     Dates: start: 20061025, end: 20070117
  2. PEGASYS [Suspect]
     Indication: DRUG USE FOR UNKNOWN INDICATION
     Dosage: 180 MCG; QW; SC
     Route: 058
     Dates: start: 20061025, end: 20070117

REACTIONS (3)
  - HEPATITIS C [None]
  - HYPERTRANSAMINASAEMIA [None]
  - SERUM FERRITIN INCREASED [None]
